FAERS Safety Report 16821395 (Version 1)
Quarter: 2019Q3

REPORT INFORMATION
  Report Type: Spontaneous
  Country: DE (occurrence: DE)
  Receive Date: 20190918
  Receipt Date: 20190918
  Transmission Date: 20191005
  Serious: Yes (Other)
  Sender: FDA-Public Use
  Company Number: DE-TEVA-2019-DE-1106885

PATIENT
  Age: 70 Year
  Sex: Female
  Weight: 56 kg

DRUGS (5)
  1. RAMIPRIL. [Concomitant]
     Active Substance: RAMIPRIL
  2. HCT-RATIOPHARM 25MG TABLETTEN [Suspect]
     Active Substance: HYDROCHLOROTHIAZIDE
     Indication: HYPERTENSION
     Dosage: 1XTGL.?25 MILLIGRAM
     Route: 048
     Dates: start: 20190808, end: 20190809
  3. AMLODIPIN [Concomitant]
     Active Substance: AMLODIPINE BESYLATE
  4. IDEOS [Concomitant]
     Active Substance: CALCIUM CARBONATE\CHOLECALCIFEROL
  5. PANTOPRAZOL [Concomitant]
     Active Substance: PANTOPRAZOLE SODIUM

REACTIONS (5)
  - Product physical issue [Unknown]
  - Oesophageal pain [Recovering/Resolving]
  - Product substitution issue [Unknown]
  - Dysphagia [Recovering/Resolving]
  - Oesophagitis chemical [Recovering/Resolving]

NARRATIVE: CASE EVENT DATE: 20190808
